FAERS Safety Report 15686302 (Version 1)
Quarter: 2018Q4

REPORT INFORMATION
  Report Type: Spontaneous
  Country: US (occurrence: US)
  Receive Date: 20181204
  Receipt Date: 20181204
  Transmission Date: 20190205
  Serious: No
  Sender: FDA-Public Use
  Company Number: US-009507513-1811USA010986

PATIENT
  Sex: Female

DRUGS (1)
  1. NEXPLANON [Suspect]
     Active Substance: ETONOGESTREL
     Dosage: 1 IMPLANT, FREQUENCY: 3 YEAR; ROUTE OF ADMINISTRATION REPORTED AS LEFT, IMPLANT
     Route: 059

REACTIONS (3)
  - Incorrect product administration duration [Unknown]
  - Product prescribing error [Unknown]
  - No adverse event [Unknown]
